FAERS Safety Report 9547728 (Version 1)
Quarter: 2013Q3

REPORT INFORMATION
  Report Type: Spontaneous
  Country: CH (occurrence: None)
  Receive Date: 20130920
  Receipt Date: 20130920
  Transmission Date: 20140515
  Serious: Yes (Other)
  Sender: FDA-Public Use
  Company Number: 20130487

PATIENT
  Age: 64 Year
  Sex: Female
  Weight: 73 kg

DRUGS (25)
  1. VENOFER [Suspect]
     Indication: ANAEMIA
     Dates: start: 20130807, end: 20130807
  2. ALGINATE (SODIUM BICARBONATE) [Concomitant]
  3. ASPIRIN (ACETYLSALICYLIC ACID) [Concomitant]
  4. BETAMETHASONE VALERATE (BETHAMETHASONE VALERATE, BETAMETHASONE) [Concomitant]
  5. CODEINE (CODEINE PHOSPHATE) [Concomitant]
  6. CONOTRANE (DIMETICONE, BENZALKONIUM CHLORIDE, BENZALKONIUM CHLORIDE SOL 50%, DEMETHICONE) [Concomitant]
  7. DILTIAZEM [Concomitant]
  8. FERROUS SULPHATE (FERROUS SULFATE) [Concomitant]
  9. GAVISCON (SODIUM BICARBONATE, ALGINIC ACID, ALUMINIUM HYDROXIDE, ALUMINUM HYDROXIDE GEL) [Concomitant]
  10. KALTOSTAT (CALCIUM ALGINATE, SODIUM ALGINTE) [Concomitant]
  11. KETACONAZOLE (KETOCONAZOLE) [Concomitant]
  12. LACTULOSE (LACTULOSE) [Concomitant]
  13. LANSOPRAZOLE (LANSOPRAZOLE) [Concomitant]
  14. LOPERIMIDE (LOPERAMIDE) [Concomitant]
  15. PRONTOSAN (POLIHEXANIDE) [Concomitant]
  16. RAMIPRIL (RAMIPRIL) [Concomitant]
  17. SALAMOL (SALBUTAMOL, SALBUTAMOL SULPHATE) [Concomitant]
  18. SODIUM CHLORIDE (REHYDRATION SALTS), ORAL [Concomitant]
  19. SULFADIAZINE SILVER (NB 14607/0116 ALLEVYN AG RANGE CONTAINING SILVER SULPHADIAZINE) [Concomitant]
  20. SYMBICORT (FORMOTEROL FUMARATE, BUDESONIDE, BUDESONIDE MICRONISED, FORMOTEROL) [Concomitant]
  21. TEMAZEPAM (TEMAZEPAM) [Concomitant]
  22. TRAZODONE (TRAZDONE) [Concomitant]
  23. PARACETAMOL [Concomitant]
  24. NICOTINE [Concomitant]
  25. ONDANSETRON [Concomitant]

REACTIONS (5)
  - Abdominal pain [None]
  - Chest pain [None]
  - Hypotension [None]
  - Tachycardia [None]
  - Vomiting [None]
